FAERS Safety Report 9084998 (Version 1)
Quarter: 2013Q1

REPORT INFORMATION
  Report Type: Spontaneous
  Country: US (occurrence: US)
  Receive Date: 20130131
  Receipt Date: 20130131
  Transmission Date: 20140127
  Serious: Yes (Hospitalization, Other)
  Sender: FDA-Public Use
  Company Number: US-PFIZER INC-2013031759

PATIENT
  Age: 81 Year
  Sex: Female
  Weight: 47.62 kg

DRUGS (3)
  1. ZOLOFT [Suspect]
     Dosage: 50 MG, DAILY
     Route: 048
     Dates: start: 2002
  2. TOPROL XL [Suspect]
     Indication: HYPERTENSION
     Dosage: 25 MG, DAILY
     Dates: start: 2012, end: 2013
  3. TOPROL XL [Suspect]
     Dosage: 12.5, DAILY
     Dates: start: 201301

REACTIONS (4)
  - Fall [Unknown]
  - Contusion [Unknown]
  - Hypotension [Not Recovered/Not Resolved]
  - Hypertension [Unknown]
